FAERS Safety Report 7611386-9 (Version None)
Quarter: 2011Q3

REPORT INFORMATION
  Report Type: 
  Country: None (occurrence: None)
  Receive Date: 20110715
  Receipt Date: 20110707
  Transmission Date: 20111222
  Serious: Yes (Other)
  Sender: FDA-Public Use
  Company Number: US-ROCHE-774959

PATIENT
  Sex: Male
  Weight: 83.9 kg

DRUGS (5)
  1. ASPIRIN [Concomitant]
  2. ACCUTANE [Suspect]
     Indication: ACNE
     Route: 048
     Dates: start: 20011123
  3. ACCUTANE [Suspect]
     Route: 048
     Dates: start: 20070101
  4. IBUPROFEN [Concomitant]
  5. ACETAMINOPHEN [Concomitant]

REACTIONS (8)
  - DIVERTICULUM [None]
  - DEPRESSION [None]
  - COLITIS ULCERATIVE [None]
  - IRON DEFICIENCY ANAEMIA [None]
  - LIP DRY [None]
  - HAEMORRHOIDS [None]
  - IRRITABLE BOWEL SYNDROME [None]
  - SKIN FISSURES [None]
